FAERS Safety Report 7627109-3 (Version None)
Quarter: 2011Q3

REPORT INFORMATION
  Report Type: 
  Country: None (occurrence: None)
  Receive Date: 20110721
  Receipt Date: 20110718
  Transmission Date: 20111222
  Serious: Yes (Hospitalization)
  Sender: FDA-Public Use
  Company Number: FR-PFIZER INC-2011150673

PATIENT
  Age: 83 Year
  Sex: Male

DRUGS (8)
  1. NITROGLYCERIN [Suspect]
     Dosage: UNK
     Route: 062
     Dates: end: 20110310
  2. KARDEGIC [Concomitant]
  3. PERINDOPRIL ERBUMINE [Suspect]
     Dosage: UNK
     Route: 048
     Dates: end: 20110310
  4. PLAVIX [Concomitant]
  5. LASIX [Suspect]
     Dosage: UNK
     Route: 048
     Dates: end: 20110310
  6. ALDACTONE [Suspect]
     Dosage: UNK
     Route: 048
     Dates: end: 20110310
  7. BISOPROLOL FUMARATE [Suspect]
     Dosage: UNK
     Route: 048
  8. ATORVASTATIN CALCIUM [Concomitant]

REACTIONS (2)
  - ORTHOSTATIC HYPOTENSION [None]
  - FALL [None]
